FAERS Safety Report 9704244 (Version 1)
Quarter: 2013Q4

REPORT INFORMATION
  Report Type: Spontaneous
  Country: US (occurrence: US)
  Receive Date: 20131122
  Receipt Date: 20131122
  Transmission Date: 20140711
  Serious: No
  Sender: FDA-Public Use
  Company Number: US-MYLANLABS-2013S1002775

PATIENT
  Sex: Female

DRUGS (4)
  1. AMLODIPINE BESYLATE [Suspect]
  2. DONEPEZIL [Suspect]
  3. GLIMEPIRIDE [Suspect]
  4. SERTRALINE HYDROCHLORIDE [Suspect]

REACTIONS (2)
  - Memory impairment [Not Recovered/Not Resolved]
  - Condition aggravated [Not Recovered/Not Resolved]
